FAERS Safety Report 12588285 (Version 1)
Quarter: 2016Q3

REPORT INFORMATION
  Report Type: Spontaneous
  Country: US (occurrence: US)
  Receive Date: 20160725
  Receipt Date: 20160725
  Transmission Date: 20161109
  Serious: No
  Sender: FDA-Public Use
  Company Number: US-JNJFOC-20160510638

PATIENT
  Sex: Female

DRUGS (3)
  1. ZYRTEC [Suspect]
     Active Substance: CETIRIZINE HYDROCHLORIDE
     Indication: PRURITUS
     Dosage: 1 TABLET AS NEEDED
     Route: 048
  2. ZYRTEC [Suspect]
     Active Substance: CETIRIZINE HYDROCHLORIDE
     Indication: ARTHROPOD BITE
     Dosage: 1 TABLET AS NEEDED
     Route: 048
  3. ZYRTEC [Suspect]
     Active Substance: CETIRIZINE HYDROCHLORIDE
     Indication: SWELLING
     Dosage: 1 TABLET AS NEEDED
     Route: 048

REACTIONS (4)
  - Somnolence [Unknown]
  - Expired product administered [Unknown]
  - Product use issue [Unknown]
  - Off label use [Unknown]
